FAERS Safety Report 18978692 (Version 1)
Quarter: 2021Q1

REPORT INFORMATION
  Report Type: Spontaneous
  Country: TR (occurrence: TR)
  Receive Date: 20210308
  Receipt Date: 20210308
  Transmission Date: 20210420
  Serious: Yes (Other)
  Sender: FDA-Public Use
  Company Number: TR-LUPIN PHARMACEUTICALS INC.-2021-02728

PATIENT
  Age: 53 Year
  Sex: Male

DRUGS (4)
  1. AZITHROMYCIN ANHYDROUS. [Suspect]
     Active Substance: AZITHROMYCIN ANHYDROUS
     Indication: COVID-19
     Dosage: LOADING DOSE OF 500MG ONCE
     Route: 065
     Dates: start: 2020
  2. HYDROXYCHLOROQUINE [Suspect]
     Active Substance: HYDROXYCHLOROQUINE
     Dosage: MAINTENANCE DOSE OF 200MG TWICE
     Route: 065
     Dates: start: 2020
  3. HYDROXYCHLOROQUINE [Suspect]
     Active Substance: HYDROXYCHLOROQUINE
     Indication: COVID-19
     Dosage: LOADING DOSE OF 400MG TWICE
     Route: 065
     Dates: start: 2020
  4. AZITHROMYCIN ANHYDROUS. [Suspect]
     Active Substance: AZITHROMYCIN ANHYDROUS
     Dosage: MAINTENANCE DOSE OF 250MG ONCE
     Route: 065
     Dates: start: 2020

REACTIONS (2)
  - Off label use [Unknown]
  - Electrocardiogram QT prolonged [Unknown]

NARRATIVE: CASE EVENT DATE: 2020
